FAERS Safety Report 4725104-5 (Version None)
Quarter: 2005Q3

REPORT INFORMATION
  Report Type: 
  Country: None (occurrence: None)
  Receive Date: 20050721
  Receipt Date: 20050708
  Transmission Date: 20060218
  Serious: No
  Sender: FDA-Public Use
  Company Number: TPA2005A00763

PATIENT
  Age: 2 Year

DRUGS (1)
  1. ACTOS [Suspect]
     Dosage: ONCE, PER ORAL
     Route: 048
     Dates: start: 20050701, end: 20050701

REACTIONS (1)
  - ACCIDENTAL DRUG INTAKE BY CHILD [None]
